FAERS Safety Report 8619335-1 (Version None)
Quarter: 2012Q3

REPORT INFORMATION
  Report Type: 
  Country: None (occurrence: None)
  Receive Date: 20120824
  Receipt Date: 20120822
  Transmission Date: 20120928
  Serious: Yes (Other)
  Sender: FDA-Public Use
  Company Number: CH-PFIZER INC-2012205607

PATIENT
  Age: 65 Year
  Sex: Female
  Weight: 38 kg

DRUGS (11)
  1. PROGRAF [Concomitant]
     Dosage: 3.5 MG, UNK
     Route: 048
     Dates: end: 20120726
  2. ZITHROMAX [Concomitant]
     Dosage: 250 MG, 3 PER 1 WEEK
     Route: 048
  3. VFEND [Suspect]
     Indication: BRONCHOPULMONARY ASPERGILLOSIS
     Dosage: 200 MG, 2X/DAY
     Route: 048
     Dates: start: 20120726
  4. ASPIRIN [Concomitant]
     Dosage: 100 MG, 1X/DAY
  5. PROGRAF [Concomitant]
     Dosage: 1 MG, 2X/DAY
     Route: 048
     Dates: start: 20120727
  6. ALDACTONE [Suspect]
     Dosage: 25 MG, 1X/DAY
     Route: 048
     Dates: end: 20120731
  7. PREDNISONE [Suspect]
     Dosage: 5 MG, 1X/DAY
     Route: 048
     Dates: start: 20120727
  8. MYFORTIC [Concomitant]
     Dosage: 360 MG, 2X/DAY
  9. LIQUAEMIN INJ [Concomitant]
     Dosage: UNK
     Dates: start: 20120724
  10. PREDNISONE [Suspect]
     Dosage: 30 MG, 1X/DAY
     Route: 048
     Dates: start: 20120718, end: 20120726
  11. PREDNISONE [Suspect]
     Dosage: 5 MG, 1X/DAY
     Route: 048
     Dates: end: 20120717

REACTIONS (4)
  - HYPONATRAEMIA [None]
  - ADRENAL INSUFFICIENCY [None]
  - CONVULSION [None]
  - HYPERKALAEMIA [None]
